FAERS Safety Report 15061722 (Version 3)
Quarter: 2019Q4

REPORT INFORMATION
  Report Type: Report from Study
  Country: DE (occurrence: DE)
  Receive Date: 20180625
  Receipt Date: 20191108
  Transmission Date: 20200122
  Serious: Yes (Hospitalization)
  Sender: FDA-Public Use
  Company Number: DE-JNJFOC-20180627535

PATIENT
  Age: 53 Year
  Sex: Male
  Weight: 96 kg

DRUGS (2)
  1. STELARA [Suspect]
     Active Substance: USTEKINUMAB
     Indication: PSORIASIS
     Route: 058
     Dates: start: 20100505
  2. RAMIPRIL. [Concomitant]
     Active Substance: RAMIPRIL
     Dosage: 1.25 (UNSPECIFIED UNIT)
     Route: 065

REACTIONS (1)
  - Phaeochromocytoma [Recovered/Resolved]

NARRATIVE: CASE EVENT DATE: 20180203
